FAERS Safety Report 10556802 (Version 1)
Quarter: 2014Q4

REPORT INFORMATION
  Report Type: Report from Study
  Country: US (occurrence: US)
  Receive Date: 20141031
  Receipt Date: 20141031
  Transmission Date: 20150529
  Serious: Yes (Hospitalization)
  Sender: FDA-Public Use
  Company Number: US-JNJFOC-20141019514

PATIENT
  Sex: Female
  Weight: 74.39 kg

DRUGS (1)
  1. REMICADE [Suspect]
     Active Substance: INFLIXIMAB
     Indication: RHEUMATOID ARTHRITIS
     Route: 042
     Dates: start: 2005, end: 20140910

REACTIONS (2)
  - Pneumonia [Unknown]
  - Sarcoma [Unknown]

NARRATIVE: CASE EVENT DATE: 2014
